FAERS Safety Report 21839813 (Version 2)
Quarter: 2023Q1

REPORT INFORMATION
  Report Type: Report from Study
  Country: US (occurrence: US)
  Receive Date: 20230109
  Receipt Date: 20230112
  Transmission Date: 20230417
  Serious: No
  Sender: FDA-Public Use
  Company Number: US-ABBVIE-4251827

PATIENT
  Age: 63 Year
  Sex: Male
  Weight: 91 kg

DRUGS (3)
  1. HUMIRA [Suspect]
     Active Substance: ADALIMUMAB
     Indication: Psoriatic arthropathy
     Dosage: FORM STRENGTH: 40 MG
     Route: 058
     Dates: start: 2010, end: 202206
  2. HUMIRA [Suspect]
     Active Substance: ADALIMUMAB
     Dosage: START DATE FOR 2ND REGIMEN 2022
     Route: 058
  3. QUINAPRIL [Concomitant]
     Active Substance: QUINAPRIL
     Indication: Product used for unknown indication

REACTIONS (7)
  - Peripheral swelling [Not Recovered/Not Resolved]
  - Pain in extremity [Not Recovered/Not Resolved]
  - Nasopharyngitis [Recovered/Resolved]
  - Arthralgia [Not Recovered/Not Resolved]
  - COVID-19 [Recovered/Resolved]
  - Limb discomfort [Unknown]
  - Pain [Not Recovered/Not Resolved]

NARRATIVE: CASE EVENT DATE: 20191101
